FAERS Safety Report 6030880-8 (Version None)
Quarter: 2009Q1

REPORT INFORMATION
  Report Type: 
  Country: None (occurrence: None)
  Receive Date: 20090106
  Receipt Date: 20081223
  Transmission Date: 20090719
  Serious: Yes (Hospitalization, Other)
  Sender: FDA-Public Use
  Company Number: 233270K08USA

PATIENT
  Age: 51 Year
  Sex: Female

DRUGS (1)
  1. REBIF [Suspect]
     Indication: MULTIPLE SCLEROSIS
     Dosage: 44 MCG, SUBCUTANEOUS
     Route: 058
     Dates: start: 20080627

REACTIONS (2)
  - INTERVERTEBRAL DISC PROTRUSION [None]
  - POST PROCEDURAL HAEMATOMA [None]
